FAERS Safety Report 9408481 (Version 3)
Quarter: 2013Q3

REPORT INFORMATION
  Report Type: Spontaneous
  Country: US (occurrence: US)
  Receive Date: 20130718
  Receipt Date: 20130807
  Transmission Date: 20140515
  Serious: No
  Sender: FDA-Public Use
  Company Number: US-009507513-1307USA009489

PATIENT
  Age: 41 Year
  Sex: Female
  Weight: 122.45 kg

DRUGS (3)
  1. CLARITIN-D-12 [Suspect]
     Indication: HYPERSENSITIVITY
     Dosage: 5 MG, Q12H
     Route: 048
     Dates: start: 20130703, end: 20130705
  2. CLARITIN-D-12 [Suspect]
     Indication: SINUS CONGESTION
  3. CLARITIN-D-12 [Suspect]
     Indication: MEDICAL OBSERVATION

REACTIONS (1)
  - Insomnia [Recovered/Resolved]
